FAERS Safety Report 9658644 (Version 2)
Quarter: 2013Q4

REPORT INFORMATION
  Report Type: Spontaneous
  Country: US (occurrence: US)
  Receive Date: 20131030
  Receipt Date: 20131030
  Transmission Date: 20140711
  Serious: No
  Sender: FDA-Public Use
  Company Number: US-PURDUE-USA-2010-0058666

PATIENT
  Age: 35 Year
  Sex: Female
  Weight: 70.3 kg

DRUGS (5)
  1. OXYCONTIN (NDA 22-272) [Suspect]
     Indication: PAIN
     Dosage: 80 MG, TID
     Route: 048
     Dates: start: 201010, end: 20111011
  2. OXYCONTIN TABLETS [Suspect]
     Indication: PAIN
     Dosage: 80 MG, BID
     Dates: start: 20080418
  3. OXYCODONE HCL IR CAPSULES [Concomitant]
     Indication: BREAKTHROUGH PAIN
     Dosage: 5 MG, Q4H PRN
     Route: 048
     Dates: start: 20080404
  4. EFFEXOR [Concomitant]
     Indication: DEPRESSION
     Dosage: 75 MG, BID
     Dates: start: 20081120
  5. LYRICA [Concomitant]
     Indication: TRIGEMINAL NEURALGIA
     Dosage: 200 MG, BID
     Dates: start: 20080404

REACTIONS (7)
  - Painful defaecation [Not Recovered/Not Resolved]
  - Abnormal faeces [Unknown]
  - Mucous stools [Not Recovered/Not Resolved]
  - Drug effect decreased [Not Recovered/Not Resolved]
  - Faeces soft [Not Recovered/Not Resolved]
  - Abdominal pain upper [Not Recovered/Not Resolved]
  - Nausea [Not Recovered/Not Resolved]
